FAERS Safety Report 8016405-6 (Version None)
Quarter: 2011Q4

REPORT INFORMATION
  Report Type: 
  Country: None (occurrence: None)
  Receive Date: 20111230
  Receipt Date: 20111221
  Transmission Date: 20120403
  Serious: Yes (Congenital Anomaly)
  Sender: FDA-Public Use
  Company Number: US-ELI_LILLY_AND_COMPANY-US201112006891

PATIENT

DRUGS (1)
  1. PROZAC [Suspect]
     Dosage: UNK
     Route: 064
     Dates: start: 19940101, end: 19941202

REACTIONS (2)
  - TALIPES [None]
  - FOETAL EXPOSURE DURING PREGNANCY [None]
